FAERS Safety Report 5178990-1 (Version None)
Quarter: 2006Q4

REPORT INFORMATION
  Report Type: 
  Country: None (occurrence: None)
  Receive Date: 20061215
  Receipt Date: 20061215
  Transmission Date: 20070319
  Serious: Yes (Life-Threatening, Hospitalization)
  Sender: FDA-Public Use
  Company Number: None

PATIENT
  Sex: Female
  Weight: 53.6 kg

DRUGS (10)
  1. VELCADE [Suspect]
     Indication: MULTIPLE MYELOMA
     Dosage: 1 MG/M2  DAYS 1 AND 8 IV
     Route: 042
     Dates: start: 20061114, end: 20061114
  2. DOXORUBICIN HCL [Suspect]
     Indication: MULTIPLE MYELOMA
     Dosage: 10MG/ M2  DAYS 1 AND 8 IV
     Route: 042
     Dates: start: 20061114, end: 20061114
  3. LEXAPRO [Concomitant]
  4. METOPROLOL SUCCINATE [Concomitant]
  5. HYDROCHLOROTHIAZIDE [Concomitant]
  6. VALGANCICLOVIR HCL [Concomitant]
  7. PROTONIX [Concomitant]
  8. GABAPENTIN [Concomitant]
  9. MORPHINE [Concomitant]
  10. LOVENOX [Concomitant]

REACTIONS (12)
  - CEREBRAL HAEMORRHAGE [None]
  - COMPRESSION FRACTURE [None]
  - CONVULSION [None]
  - CYTOMEGALOVIRUS OESOPHAGITIS [None]
  - DEEP VEIN THROMBOSIS [None]
  - ENCEPHALITIS CYTOMEGALOVIRUS [None]
  - HEADACHE [None]
  - HYPERTENSION [None]
  - ILL-DEFINED DISORDER [None]
  - NEUTROPHIL COUNT DECREASED [None]
  - PLATELET COUNT DECREASED [None]
  - PROCEDURAL COMPLICATION [None]
